FAERS Safety Report 8528819-6 (Version None)
Quarter: 2012Q3

REPORT INFORMATION
  Report Type: 
  Country: None (occurrence: None)
  Receive Date: 20120723
  Receipt Date: 20120718
  Transmission Date: 20120928
  Serious: Yes (Other)
  Sender: FDA-Public Use
  Company Number: US-PFIZER INC-2012174395

PATIENT
  Sex: Female
  Weight: 47.166 kg

DRUGS (4)
  1. LISINOPRIL [Concomitant]
     Indication: BLOOD PRESSURE ABNORMAL
     Dosage: 10 MG, DAILY
  2. LIPITOR [Concomitant]
     Indication: BLOOD CHOLESTEROL ABNORMAL
     Dosage: 40 MG, DAILY
  3. CHANTIX [Suspect]
     Indication: SMOKING CESSATION THERAPY
     Dosage: 0.5 MG, UNK
     Route: 048
     Dates: start: 20080101, end: 20090101
  4. CHANTIX [Suspect]
     Dosage: UNK
     Route: 048

REACTIONS (5)
  - NERVOUSNESS [None]
  - ANXIETY [None]
  - PANIC ATTACK [None]
  - MEMORY IMPAIRMENT [None]
  - DEPRESSION [None]
